FAERS Safety Report 25498627 (Version 1)
Quarter: 2025Q3

REPORT INFORMATION
  Report Type: Report from Study
  Country: BR (occurrence: BR)
  Receive Date: 20250701
  Receipt Date: 20250701
  Transmission Date: 20251020
  Serious: Yes (Hospitalization)
  Sender: BIOGEN
  Company Number: BR-BIOGEN-2025BI01315646

PATIENT
  Sex: Female
  Weight: 85.2 kg

DRUGS (2)
  1. TYSABRI [Suspect]
     Active Substance: NATALIZUMAB
     Indication: Multiple sclerosis
     Dosage: 300MG/15ML (20MG/ML)
     Route: 050
     Dates: start: 2019
  2. QUETIAPINE [Concomitant]
     Active Substance: QUETIAPINE
     Indication: Insomnia
     Dosage: (ONE TABLET DIVIDED IN HALF)
     Route: 050

REACTIONS (1)
  - Multiple sclerosis relapse [Recovered/Resolved with Sequelae]
